FAERS Safety Report 10247379 (Version 1)
Quarter: 2014Q2

REPORT INFORMATION
  Report Type: Spontaneous
  Country: IN (occurrence: None)
  Receive Date: 20140617
  Receipt Date: 20140617
  Transmission Date: 20141212
  Serious: Yes (Other)
  Sender: FDA-Public Use
  Company Number: IMP_07680_2014

PATIENT
  Age: 75 Year
  Sex: Male

DRUGS (8)
  1. BUPROPION (BUPROPION) [Suspect]
     Indication: DEPRESSION
  2. BUPROPION (BUPROPION) [Suspect]
     Indication: AGITATION
  3. MIRTAZAPINE [Concomitant]
  4. AMLODIPINE [Concomitant]
  5. ATENOLOL [Concomitant]
  6. CARBIDOPA [Concomitant]
  7. LEVODOPA [Concomitant]
  8. CLONAZEPAM [Concomitant]

REACTIONS (1)
  - Hyponatraemia [None]
